FAERS Safety Report 25362858 (Version 1)
Quarter: 2025Q2

REPORT INFORMATION
  Report Type: Spontaneous
  Country: US (occurrence: None)
  Receive Date: 20250523
  Receipt Date: 20250523
  Transmission Date: 20250716
  Serious: Yes (unspecified)
  Sender: FDA-CTU
  Company Number: None

PATIENT
  Age: 36 Year
  Sex: Female
  Weight: 58.5 kg

DRUGS (4)
  1. ZYRTEC [Suspect]
     Active Substance: CETIRIZINE HYDROCHLORIDE
     Indication: Urticaria
     Dates: start: 20190510, end: 20200522
  2. VITAMIN B COMPLEX [Concomitant]
     Active Substance: CYANOCOBALAMIN\DEXPANTHENOL\NIACINAMIDE\PYRIDOXINE HYDROCHLORIDE\RIBOFLAVIN 5^-PHOSPHATE SODIUM\THIA
  3. women^s daily [Concomitant]
  4. FISH OIL [Concomitant]
     Active Substance: FISH OIL

REACTIONS (15)
  - Stress [None]
  - Condition aggravated [None]
  - Therapeutic product effect incomplete [None]
  - Drug dependence [None]
  - Rebound effect [None]
  - Urticaria [None]
  - Drug withdrawal syndrome [None]
  - Skin lesion [None]
  - Scratch [None]
  - Sleep disorder [None]
  - Sensitive skin [None]
  - Urticaria [None]
  - Hypokinesia [None]
  - Histamine intolerance [None]
  - Symptom recurrence [None]

NARRATIVE: CASE EVENT DATE: 20190510
